FAERS Safety Report 17647345 (Version 2)
Quarter: 2020Q2

REPORT INFORMATION
  Report Type: Report from Study
  Country: US (occurrence: US)
  Receive Date: 20200408
  Receipt Date: 20200428
  Transmission Date: 20200713
  Serious: Yes (Life-Threatening, Hospitalization)
  Sender: FDA-Public Use
  Company Number: US-SA-2020SA085617

PATIENT
  Age: 56 Year
  Sex: Male

DRUGS (21)
  1. ACETAMINOPHEN. [Concomitant]
     Active Substance: ACETAMINOPHEN
     Indication: PAIN
     Dosage: 650 MG, AS NECESSARY
     Route: 048
     Dates: start: 20200321, end: 20200326
  2. HEPARIN 1000 [Concomitant]
     Indication: THROMBOSIS PROPHYLAXIS
     Dosage: 500 IU, TID
     Route: 058
     Dates: start: 20200321, end: 20200331
  3. LIDOCAINE. [Concomitant]
     Active Substance: LIDOCAINE
     Indication: CATHETER REMOVAL
     Dosage: 2 ML, AS NECESSARY
     Route: 023
     Dates: start: 20200328
  4. DULCOLAX (BISACODYL) [Concomitant]
     Active Substance: BISACODYL
     Indication: CONSTIPATION
     Dosage: 10 MG, QD
     Route: 054
     Dates: start: 20200329
  5. PEPCID                             /00305201/ [Concomitant]
     Active Substance: ALUMINUM HYDROXIDE\MAGNESIUM CARBONATE
     Indication: PROPHYLAXIS AGAINST GASTROINTESTINAL ULCER
     Dosage: 20 MG, TID
     Route: 042
     Dates: start: 20200326
  6. ROCEPHINE [Concomitant]
     Active Substance: CEFTRIAXONE SODIUM
     Indication: PNEUMONIA
     Dosage: 1 G, QD
     Route: 042
     Dates: start: 20200321, end: 20200323
  7. SUBLIMAZE [Concomitant]
     Active Substance: FENTANYL CITRATE
     Indication: SEDATION
     Dosage: 250 ML, 300MCG/HR
     Route: 042
     Dates: start: 20200331
  8. PLAQUENIL [HYDROXYCHLOROQUINE PHOSPHATE] [Concomitant]
     Active Substance: HYDROXYCHLOROQUINE DIPHOSPHATE
     Dosage: 200 MG, BID
     Route: 048
     Dates: start: 20200328, end: 20200330
  9. ZITHROMAX [Concomitant]
     Active Substance: AZITHROMYCIN DIHYDRATE
     Indication: PNEUMONIA
     Dosage: 500 MG, BID
     Route: 048
     Dates: start: 20200321, end: 20200326
  10. HIBICLENS [Concomitant]
     Active Substance: CHLORHEXIDINE GLUCONATE
     Indication: INFECTION PROPHYLAXIS
     Dosage: 2 %, AS NECESSARY
     Route: 061
     Dates: start: 20200328
  11. MIDAZOLAM. [Concomitant]
     Active Substance: MIDAZOLAM
     Indication: SEDATION
     Dosage: 15MG/HR TITRATE
     Route: 042
     Dates: start: 20200331
  12. PLAQUENIL [HYDROXYCHLOROQUINE PHOSPHATE] [Concomitant]
     Active Substance: HYDROXYCHLOROQUINE DIPHOSPHATE
     Indication: CORONAVIRUS INFECTION
     Dosage: 400 MG, BID
     Route: 048
     Dates: start: 20200322, end: 20200323
  13. PLAQUENIL [HYDROXYCHLOROQUINE PHOSPHATE] [Concomitant]
     Active Substance: HYDROXYCHLOROQUINE DIPHOSPHATE
     Dosage: 200 MG, 1X
     Route: 048
     Dates: start: 20200327, end: 20200327
  14. NIMBEX [Concomitant]
     Active Substance: CISATRACURIUM BESYLATE
     Indication: ANAESTHESIA
     Dosage: 100 ML, 0.86ML/HR
     Route: 042
     Dates: start: 20200331
  15. WHITE PETROLATUM [Concomitant]
     Active Substance: PETROLATUM
     Indication: EYE LUBRICATION THERAPY
     Dosage: 1 DF, QID
     Route: 047
     Dates: start: 20200331
  16. ACETAMINOPHEN. [Concomitant]
     Active Substance: ACETAMINOPHEN
     Indication: PYREXIA
     Dosage: 650 MG
     Dates: start: 20200326
  17. ZOFRAN [Concomitant]
     Active Substance: ONDANSETRON HYDROCHLORIDE
     Indication: NAUSEA
     Dosage: 4 MG, QID
     Route: 042
     Dates: start: 20200321, end: 20200327
  18. SENNA                              /00142201/ [Concomitant]
     Active Substance: SENNA LEAF
     Indication: CONSTIPATION
     Dosage: 17.2MG AT NIGHT
     Route: 048
     Dates: start: 20200331
  19. ZITHROMAX [Concomitant]
     Active Substance: AZITHROMYCIN DIHYDRATE
     Indication: CORONAVIRUS INFECTION
  20. SARILUMAB [Suspect]
     Active Substance: SARILUMAB
     Indication: CORONAVIRUS INFECTION
     Dosage: REG MAB 1400 MG
     Route: 042
     Dates: start: 20200327, end: 20200327
  21. PLAQUENIL [HYDROXYCHLOROQUINE PHOSPHATE] [Concomitant]
     Active Substance: HYDROXYCHLOROQUINE DIPHOSPHATE
     Dosage: 200 MG, BID
     Route: 048
     Dates: start: 20200323, end: 20200326

REACTIONS (5)
  - Transaminases increased [Not Recovered/Not Resolved]
  - Pulmonary embolism [Not Recovered/Not Resolved]
  - Deep vein thrombosis [Not Recovered/Not Resolved]
  - Lung infiltration [Recovered/Resolved]
  - Pyrexia [Recovered/Resolved]

NARRATIVE: CASE EVENT DATE: 20200327
